FAERS Safety Report 19110257 (Version 1)
Quarter: 2021Q2

REPORT INFORMATION
  Report Type: Spontaneous
  Country: US (occurrence: US)
  Receive Date: 20210409
  Receipt Date: 20210409
  Transmission Date: 20210717
  Serious: Yes (Other)
  Sender: FDA-Public Use
  Company Number: US-ASTRAZENECA-2021A269543

PATIENT
  Age: 80 Year
  Sex: Male

DRUGS (9)
  1. PROVENTIL [Concomitant]
     Active Substance: ALBUTEROL
     Dosage: AS REQUIRED
  2. LEVALBUTEROL. [Concomitant]
     Active Substance: LEVALBUTEROL
  3. QUINAPRIL. [Concomitant]
     Active Substance: QUINAPRIL
  4. LIPITOR [Concomitant]
     Active Substance: ATORVASTATIN CALCIUM
  5. NASONEX [Concomitant]
     Active Substance: MOMETASONE FUROATE
  6. AMLODIPINE [Concomitant]
     Active Substance: AMLODIPINE BESYLATE
  7. FASENRA [Suspect]
     Active Substance: BENRALIZUMAB
     Indication: ASTHMA
     Route: 058
     Dates: start: 202103
  8. ESOMEPRAZOLE. [Suspect]
     Active Substance: ESOMEPRAZOLE MAGNESIUM
     Route: 048
  9. FASENRA [Suspect]
     Active Substance: BENRALIZUMAB
     Indication: ASTHMA
     Route: 058
     Dates: start: 20210120

REACTIONS (1)
  - Parkinson^s disease [Unknown]
